FAERS Safety Report 8950281 (Version 1)
Quarter: 2012Q4

REPORT INFORMATION
  Report Type: 
  Country: JP (occurrence: JP)
  Receive Date: 20121205
  Receipt Date: 20121205
  Transmission Date: 20130627
  Serious: Yes (Other)
  Sender: FDA-Public Use
  Company Number: JP-PFIZER INC-2012301738

PATIENT
  Age: 47 Year
  Sex: Male

DRUGS (1)
  1. MIGLITOL [Suspect]
     Dosage: 150 mg, unk
     Route: 065
     Dates: start: 201108

REACTIONS (1)
  - Hypoglycaemia [Unknown]
